FAERS Safety Report 8439161-6 (Version None)
Quarter: 2012Q2

REPORT INFORMATION
  Report Type: 
  Country: None (occurrence: None)
  Receive Date: 20120615
  Receipt Date: 20120612
  Transmission Date: 20120825
  Serious: No
  Sender: FDA-Public Use
  Company Number: US-BAYER-2012-059074

PATIENT
  Age: 95 Year
  Sex: Female
  Weight: 54 kg

DRUGS (3)
  1. PAIN RELIEF [Concomitant]
     Route: 048
  2. ALEVE (CAPLET) [Suspect]
     Indication: ARTHRALGIA
     Dosage: 2 U, UNK
     Route: 048
     Dates: start: 20120611
  3. ALEVE (CAPLET) [Suspect]
     Dosage: UNK
     Route: 048
     Dates: start: 20120612

REACTIONS (3)
  - BOWEL MOVEMENT IRREGULARITY [None]
  - ABDOMINAL PAIN UPPER [None]
  - ABDOMINAL DISCOMFORT [None]
